FAERS Safety Report 4935825-7 (Version None)
Quarter: 2006Q1

REPORT INFORMATION
  Report Type: 
  Country: None (occurrence: None)
  Receive Date: 20060302
  Receipt Date: 20060214
  Transmission Date: 20060701
  Serious: No
  Sender: FDA-Public Use
  Company Number: US200601000708

PATIENT
  Age: 18 Year
  Sex: Female
  Weight: 72.6 kg

DRUGS (5)
  1. ZYPREXA [Suspect]
     Indication: BIPOLAR DISORDER
     Dosage: 10 MG, 2/D, ORAL
     Route: 048
     Dates: start: 19970101, end: 20040101
  2. ZOLOFT [Concomitant]
  3. TRIPHASIL-28 [Concomitant]
  4. DEPAKOTE [Concomitant]
  5. AMBIEN [Concomitant]

REACTIONS (7)
  - BLOODY DISCHARGE [None]
  - DRUG EXPOSURE DURING PREGNANCY [None]
  - DRUG EXPOSURE VIA BREAST MILK [None]
  - OLIGOMENORRHOEA [None]
  - PREGNANCY [None]
  - VAGINAL HAEMORRHAGE [None]
  - VOMITING [None]
